FAERS Safety Report 20501501 (Version 4)
Quarter: 2024Q4

REPORT INFORMATION
  Report Type: Spontaneous
  Country: US (occurrence: US)
  Receive Date: 20220222
  Receipt Date: 20241023
  Transmission Date: 20250114
  Serious: Yes (Other)
  Sender: PFIZER
  Company Number: US-PFIZER INC-202101742012

PATIENT
  Age: 71 Year
  Sex: Female

DRUGS (1)
  1. PREMARIN [Suspect]
     Active Substance: ESTROGENS, CONJUGATED
     Dosage: TAKE IT 3 TIMES A WEEK

REACTIONS (4)
  - Arthropathy [Unknown]
  - Facial pain [Unknown]
  - Migraine [Unknown]
  - Off label use [Unknown]
